FAERS Safety Report 19739661 (Version 1)
Quarter: 2021Q3

REPORT INFORMATION
  Report Type: Spontaneous
  Country: US (occurrence: US)
  Receive Date: 20210824
  Receipt Date: 20210824
  Transmission Date: 20211014
  Serious: Yes (Hospitalization, Other)
  Sender: FDA-Public Use
  Company Number: US-LUPIN PHARMACEUTICALS INC.-2021-15605

PATIENT
  Age: 15 Year
  Sex: Female

DRUGS (4)
  1. NORETHINDRONE. [Suspect]
     Active Substance: NORETHINDRONE
     Indication: AMENORRHOEA
  2. NORETHINDRONE. [Suspect]
     Active Substance: NORETHINDRONE
     Indication: HEAVY MENSTRUAL BLEEDING
     Dosage: UNK UNK, TID
     Route: 048
  3. ETONOGESTREL [Suspect]
     Active Substance: ETONOGESTREL
     Indication: HEAVY MENSTRUAL BLEEDING
     Dosage: UNK, ETONOGESTREL?RELEASING IMPLANT
     Route: 065
  4. ETONOGESTREL [Suspect]
     Active Substance: ETONOGESTREL
     Indication: AMENORRHOEA

REACTIONS (3)
  - Hepatic adenoma [Recovering/Resolving]
  - Haemorrhage [Recovering/Resolving]
  - Haemoperitoneum [Recovering/Resolving]
